FAERS Safety Report 5613740-3 (Version None)
Quarter: 2008Q1

REPORT INFORMATION
  Report Type: 
  Country: None (occurrence: None)
  Receive Date: 20080205
  Receipt Date: 20080122
  Transmission Date: 20080703
  Serious: Yes (Hospitalization)
  Sender: FDA-Public Use
  Company Number: US-AMGEN-QUU242526

PATIENT
  Sex: Female

DRUGS (3)
  1. ENBREL [Suspect]
     Indication: RHEUMATOID ARTHRITIS
     Dates: start: 20000101
  2. CELEBREX [Concomitant]
  3. INSULIN [Concomitant]

REACTIONS (4)
  - CENTRAL LINE INFECTION [None]
  - INJECTION SITE IRRITATION [None]
  - JOINT RANGE OF MOTION DECREASED [None]
  - SUBARACHNOID HAEMORRHAGE [None]
